FAERS Safety Report 7498690-2 (Version None)
Quarter: 2011Q2

REPORT INFORMATION
  Report Type: 
  Country: None (occurrence: None)
  Receive Date: 20110524
  Receipt Date: 20110513
  Transmission Date: 20111010
  Serious: Yes (Hospitalization)
  Sender: FDA-Public Use
  Company Number: JP-ELI_LILLY_AND_COMPANY-JP201104004804

PATIENT
  Sex: Male
  Weight: 50.6 kg

DRUGS (17)
  1. RABEPRAZOLE SODIUM [Concomitant]
     Indication: ABDOMINAL DISCOMFORT
     Dosage: 10 MG, QD
     Route: 048
  2. MAGNESIUM OXIDE [Concomitant]
     Indication: CONSTIPATION
     Dosage: 660 MG, TID
     Route: 048
     Dates: start: 20110316
  3. ZOLPIDEM [Concomitant]
     Indication: INSOMNIA
     Dosage: 10 MG, QD
     Route: 048
  4. UREPEARL [Concomitant]
     Indication: PRURITUS
     Dosage: UNK
     Route: 062
     Dates: start: 20110216
  5. RAMELTEON [Concomitant]
     Indication: NAUSEA
     Dosage: UNK
     Route: 048
     Dates: start: 20110309
  6. OXYCONTIN [Concomitant]
     Indication: CANCER PAIN
     Dosage: 7.5 MG, BID
     Route: 048
     Dates: start: 20110309
  7. LOXONIN [Concomitant]
     Indication: CANCER PAIN
     Dosage: 60 MG, TID
     Route: 048
  8. MUCOSTA [Concomitant]
     Dosage: 100 MG, TID
     Route: 048
  9. NEW LECICARBON [Concomitant]
     Indication: CONSTIPATION
     Dosage: UNK
     Route: 054
     Dates: start: 20110330
  10. OTS102 [Suspect]
     Indication: BILE DUCT CANCER
     Dosage: UNK
     Route: 058
     Dates: start: 20110216, end: 20110406
  11. OXINORM [Concomitant]
     Indication: CANCER PAIN
     Dosage: UNK
     Route: 048
     Dates: start: 20110302
  12. PRIMPERAN TAB [Concomitant]
     Indication: NAUSEA
     Dosage: 5 MG, BID
     Route: 048
     Dates: start: 20110406
  13. NAUZELIN [Concomitant]
     Indication: NAUSEA
     Dosage: UNK
     Route: 054
     Dates: start: 20110330
  14. GEMCITABINE HYDROCHLORIDE [Suspect]
     Indication: BILE DUCT CANCER
     Dosage: 1000 MG/M2, UNK
     Route: 042
     Dates: start: 20110216
  15. GEMCITABINE HYDROCHLORIDE [Suspect]
     Dosage: 800 MG/M2, UNK
     Route: 042
     Dates: start: 20110223, end: 20110330
  16. VOLTAREN                                /SCH/ [Concomitant]
     Indication: CANCER PAIN
     Dosage: UNK
     Route: 054
  17. LAXOBERON [Concomitant]
     Indication: CONSTIPATION
     Dosage: UNK
     Route: 048
     Dates: start: 20110223

REACTIONS (1)
  - PNEUMOCYSTIS JIROVECI PNEUMONIA [None]
